FAERS Safety Report 13973012 (Version 1)
Quarter: 2017Q3

REPORT INFORMATION
  Report Type: Spontaneous
  Country: ES (occurrence: ES)
  Receive Date: 20170914
  Receipt Date: 20170914
  Transmission Date: 20171128
  Serious: Yes (Death)
  Sender: FDA-Public Use
  Company Number: ES-B.I. PHARMACEUTICALS,INC./RIDGEFIELD-2017-BI-050446

PATIENT
  Age: 73 Year
  Sex: Female

DRUGS (1)
  1. PRAXBIND [Suspect]
     Active Substance: IDARUCIZUMAB
     Indication: INTESTINAL OBSTRUCTION
     Route: 065
     Dates: start: 20170907, end: 20170907

REACTIONS (1)
  - Multiple organ dysfunction syndrome [Fatal]
